FAERS Safety Report 5191144-8 (Version None)
Quarter: 2006Q4

REPORT INFORMATION
  Report Type: 
  Country: None (occurrence: None)
  Receive Date: 20061226
  Receipt Date: 20061130
  Transmission Date: 20070319
  Serious: Yes (Other)
  Sender: FDA-Public Use
  Company Number: PHFR2006GB03559

PATIENT
  Age: 39 Year
  Sex: Male
  Weight: 92 kg

DRUGS (1)
  1. NEORAL [Suspect]
     Indication: ECZEMA
     Route: 065

REACTIONS (1)
  - ASTHMA [None]
